FAERS Safety Report 13892434 (Version 1)
Quarter: 2017Q3

REPORT INFORMATION
  Report Type: Spontaneous
  Country: US (occurrence: US)
  Receive Date: 20170822
  Receipt Date: 20170822
  Transmission Date: 20171127
  Serious: No
  Sender: FDA-Public Use
  Company Number: US-ENDO PHARMACEUTICALS INC-2017-001353

PATIENT
  Age: 66 Year
  Sex: Male
  Weight: 99.77 kg

DRUGS (1)
  1. TESTOPEL [Suspect]
     Active Substance: TESTOSTERONE
     Indication: BLOOD TESTOSTERONE DECREASED
     Dosage: 12 PELLETS IMPLANTED INTO LEFT UPPER QUADRANT OF BUTTOCKS
     Route: 065
     Dates: start: 20170302

REACTIONS (2)
  - Prescribed overdose [Not Recovered/Not Resolved]
  - Nausea [Not Recovered/Not Resolved]

NARRATIVE: CASE EVENT DATE: 20170302
